FAERS Safety Report 6522877-6 (Version None)
Quarter: 2009Q4

REPORT INFORMATION
  Report Type: 
  Country: None (occurrence: None)
  Receive Date: 20091222
  Receipt Date: 20091208
  Transmission Date: 20100525
  Serious: Yes (Hospitalization)
  Sender: FDA-Public Use
  Company Number: 220042J09GBR

PATIENT
  Age: 16 Year
  Sex: Male
  Weight: 59.05 kg

DRUGS (2)
  1. SAIZEN [Suspect]
     Indication: GROWTH RETARDATION
     Dosage: 2 MG
     Dates: start: 20091007
  2. TESTOSTERONE [Concomitant]

REACTIONS (5)
  - BACK PAIN [None]
  - CHEST PAIN [None]
  - HEADACHE [None]
  - MUSCLE STRAIN [None]
  - NASOPHARYNGITIS [None]
